FAERS Safety Report 9406416 (Version 2)
Quarter: 2013Q3

REPORT INFORMATION
  Report Type: Report from Study
  Country: CA (occurrence: CA)
  Receive Date: 20130718
  Receipt Date: 20130719
  Transmission Date: 20140515
  Serious: Yes (Hospitalization, Other)
  Sender: FDA-Public Use
  Company Number: CA-ROCHE-1227804

PATIENT
  Age: 61 Year
  Sex: Female
  Weight: 94.4 kg

DRUGS (6)
  1. AVASTIN [Suspect]
     Indication: GLIOBLASTOMA
     Route: 042
     Dates: start: 20130517, end: 20130613
  2. DEXAMETHASONE [Concomitant]
  3. RANITIDINE [Concomitant]
  4. TOPAMAX [Concomitant]
  5. CARBAMAZEPINE [Concomitant]
  6. FRAGMIN [Concomitant]

REACTIONS (5)
  - Urinary tract infection [Unknown]
  - Sepsis [Unknown]
  - Neoplasm progression [Unknown]
  - Convulsion [Recovered/Resolved]
  - Drug administration error [Unknown]
